FAERS Safety Report 7892386-0 (Version None)
Quarter: 2011Q4

REPORT INFORMATION
  Report Type: 
  Country: None (occurrence: None)
  Receive Date: 20111101
  Receipt Date: 20111019
  Transmission Date: 20120403
  Serious: Yes (Other)
  Sender: FDA-Public Use
  Company Number: 1084920

PATIENT
  Age: 17 Year
  Sex: Male

DRUGS (6)
  1. METHOTREXATE [Suspect]
     Indication: OSTEOSARCOMA METASTATIC
  2. DOXORUBICIN HCL [Suspect]
     Indication: OSTEOSARCOMA METASTATIC
  3. DOCETAXEL [Suspect]
     Indication: OSTEOSARCOMA METASTATIC
  4. CISPLATIN [Suspect]
     Indication: OSTEOSARCOMA METASTATIC
  5. GEMCITABINE HYDROCHLORIDE [Suspect]
     Indication: OSTEOSARCOMA METASTATIC
  6. IFOSFAMIDE [Suspect]
     Indication: OSTEOSARCOMA METASTATIC

REACTIONS (2)
  - METASTASES TO CHEST WALL [None]
  - METASTASES TO PERITONEUM [None]
